FAERS Safety Report 4870051-1 (Version None)
Quarter: 2005Q4

REPORT INFORMATION
  Report Type: 
  Country: None (occurrence: None)
  Receive Date: 20051223
  Receipt Date: 20050328
  Transmission Date: 20060501
  Serious: Yes (Other)
  Sender: FDA-Public Use
  Company Number: 2005BI002781

PATIENT
  Age: 45 Year
  Sex: Female
  Weight: 69.4003 kg

DRUGS (1)
  1. AVONEX [Suspect]
     Indication: MULTIPLE SCLEROSIS
     Dosage: 30 UG; QW; IM
     Route: 030
     Dates: start: 20030101, end: 20030101

REACTIONS (2)
  - BIOPSY LIVER ABNORMAL [None]
  - LIVER FUNCTION TEST ABNORMAL [None]
